FAERS Safety Report 4565861-4 (Version None)
Quarter: 2005Q1

REPORT INFORMATION
  Report Type: 
  Country: None (occurrence: None)
  Receive Date: 20050131
  Receipt Date: 20050118
  Transmission Date: 20050727
  Serious: Yes (Hospitalization)
  Sender: FDA-Public Use
  Company Number: US-AMGEN-US108619

PATIENT
  Sex: Male

DRUGS (5)
  1. ENBREL [Suspect]
     Indication: CHRONIC LYMPHOCYTIC LEUKAEMIA
     Route: 058
     Dates: start: 20041208, end: 20050106
  2. RITUXIMAB [Suspect]
     Route: 042
     Dates: start: 20041214, end: 20050107
  3. BACTRIM DS [Concomitant]
  4. ACYCLOVIR [Concomitant]
  5. LEVOTHYROXINE [Concomitant]

REACTIONS (5)
  - GINGIVAL INFECTION [None]
  - INFECTION [None]
  - NEUTROPENIA [None]
  - ORAL INFECTION [None]
  - PHARYNGOLARYNGEAL PAIN [None]
